FAERS Safety Report 8345805-X (Version None)
Quarter: 2012Q2

REPORT INFORMATION
  Report Type: 
  Country: None (occurrence: None)
  Receive Date: 20120509
  Receipt Date: 20120503
  Transmission Date: 20120825
  Serious: Yes (Other)
  Sender: FDA-Public Use
  Company Number: US-AMGEN-USASP2012028246

PATIENT
  Sex: Female

DRUGS (12)
  1. PROLIA [Suspect]
     Indication: PRODUCT USED FOR UNKNOWN INDICATION
     Dosage: 60 MG, Q6MO
     Dates: start: 20101001
  2. REMERON [Concomitant]
     Dosage: 1 UNK, UNK
  3. ZYPREXA [Concomitant]
     Dosage: 1 UNK, UNK
  4. NEURONTIN [Concomitant]
     Dosage: 1 UNK, UNK
  5. VITAMIN D [Concomitant]
     Dosage: 1 UNK, UNK
  6. CALCIUM CITRATE [Concomitant]
     Dosage: 250 MG, QD
  7. ESTRADIOL [Concomitant]
     Dosage: UNK MG, UNK
  8. PROMETRIUM [Concomitant]
     Dosage: 1 UNK, UNK
  9. CALCIUM CITRATE [Concomitant]
     Dosage: 500 MG, QD
  10. MULTIVITAMIN                       /01229101/ [Concomitant]
     Dosage: UNK
  11. LIBRIUM                            /00011501/ [Concomitant]
     Dosage: 1 UNK, UNK
  12. CALCIUM CITRATE [Concomitant]
     Dosage: 3 UNK, UNK

REACTIONS (1)
  - BLOOD PARATHYROID HORMONE DECREASED [None]
